FAERS Safety Report 24994340 (Version 1)
Quarter: 2025Q1

REPORT INFORMATION
  Report Type: Other
  Country: US (occurrence: US)
  Receive Date: 20250221
  Receipt Date: 20250221
  Transmission Date: 20250409
  Serious: Yes (Hospitalization)
  Sender: ANI
  Company Number: US-ANIPHARMA-015635

PATIENT
  Age: 55 Year
  Sex: Female

DRUGS (5)
  1. PYRIDOSTIGMINE [Suspect]
     Active Substance: PYRIDOSTIGMINE
     Indication: Myasthenia gravis
  2. PREDNISONE [Concomitant]
     Active Substance: PREDNISONE
     Indication: Myasthenia gravis
  3. METHOTREXATE [Concomitant]
     Active Substance: METHOTREXATE
     Indication: Myasthenia gravis
  4. immune-globulin [Concomitant]
     Indication: Product used for unknown indication
  5. PREDNISONE [Concomitant]
     Active Substance: PREDNISONE
     Indication: Myasthenia gravis

REACTIONS (2)
  - Treatment noncompliance [Unknown]
  - Intentional product misuse [Unknown]
